FAERS Safety Report 8837986 (Version 2)
Quarter: 2013Q2

REPORT INFORMATION
  Report Type: Spontaneous
  Country: US (occurrence: US)
  Receive Date: 20121012
  Receipt Date: 20130405
  Transmission Date: 20140414
  Serious: Yes (Hospitalization)
  Sender: FDA-Public Use
  Company Number: US-ROCHE-1136981

PATIENT
  Age: 75 Year
  Sex: Female

DRUGS (6)
  1. RITUXAN [Suspect]
     Indication: AUTOIMMUNE HAEMOLYTIC ANAEMIA
     Dosage: ON 11/JUN/2001, PATIENT RECEIVED SECOND DOSE
     Route: 042
     Dates: start: 20010604, end: 20010611
  2. RITUXAN [Suspect]
     Indication: OFF LABEL USE
  3. DANOCRINE [Concomitant]
  4. PREDNISONE [Concomitant]
  5. IMURAN [Concomitant]
  6. IVIG [Concomitant]

REACTIONS (4)
  - Hepatic enzyme increased [Unknown]
  - Jaundice [Recovered/Resolved]
  - Osteopenia [Unknown]
  - Gastritis [Unknown]
